FAERS Safety Report 6715008-0 (Version None)
Quarter: 2010Q2

REPORT INFORMATION
  Report Type: 
  Country: None (occurrence: None)
  Receive Date: 20100507
  Receipt Date: 20100426
  Transmission Date: 20101027
  Serious: Yes (Other)
  Sender: FDA-Public Use
  Company Number: GB-JNJFOC-20091103642

PATIENT
  Age: 56 Year
  Sex: Male
  Weight: 85 kg

DRUGS (6)
  1. REMICADE [Suspect]
     Indication: RHEUMATOID ARTHRITIS
     Route: 042
     Dates: start: 20020509
  2. PREDNISOLONE [Concomitant]
  3. ADCAL [Concomitant]
  4. ACETAMINOPHEN AND CODEINE PHOSPHATE [Concomitant]
  5. FOLIC ACID [Concomitant]
  6. METHOTREXATE [Concomitant]

REACTIONS (1)
  - ANAL CANCER [None]
